FAERS Safety Report 9585763 (Version 1)
Quarter: 2013Q4

REPORT INFORMATION
  Report Type: Spontaneous
  Country: None (occurrence: None)
  Receive Date: 20131001
  Receipt Date: 20131001
  Transmission Date: 20140711
  Serious: Yes (Other)
  Sender: FDA-Public Use
  Company Number: GER/UKI/13/0034773

PATIENT
  Age: 52 Year
  Sex: Male

DRUGS (6)
  1. FLUOXETINE [Suspect]
     Indication: DEPRESSION
     Route: 048
     Dates: start: 201307, end: 20130905
  2. LANSOPRAZOLE ( LANSOPRAZOLE) [Concomitant]
  3. LAXIDO ( LAXIDO) [Concomitant]
  4. LORAZEPAM ( LORAZEPAM) [Concomitant]
  5. MIRTAZAPINE HYDROCHLORIDE ( MIRTAZAPINE) [Concomitant]
  6. NUTRITIONAL SUPPLEMENT [Concomitant]

REACTIONS (3)
  - Haematoma [None]
  - Haemorrhagic stroke [None]
  - Encephalomalacia [None]
